FAERS Safety Report 7487777-6 (Version None)
Quarter: 2011Q2

REPORT INFORMATION
  Report Type: 
  Country: None (occurrence: None)
  Receive Date: 20110518
  Receipt Date: 20110506
  Transmission Date: 20111010
  Serious: Yes (Other)
  Sender: FDA-Public Use
  Company Number: PHHY2011TW39439

PATIENT
  Sex: Female

DRUGS (1)
  1. EXJADE [Suspect]
     Indication: THALASSAEMIA
     Dosage: 1000 MG, UNK
     Route: 048

REACTIONS (3)
  - ROAD TRAFFIC ACCIDENT [None]
  - BONE SWELLING [None]
  - BONE PAIN [None]
